FAERS Safety Report 7112267-X (Version None)
Quarter: 2010Q4

REPORT INFORMATION
  Report Type: 
  Country: None (occurrence: None)
  Receive Date: 20101119
  Receipt Date: 20100511
  Transmission Date: 20110411
  Serious: No
  Sender: FDA-Public Use
  Company Number: A0859157A

PATIENT
  Age: 57 Year
  Sex: Male

DRUGS (2)
  1. AVODART [Suspect]
     Indication: PROSTATIC DISORDER
     Dosage: 1CAP PER DAY
     Route: 048
  2. AMITRIPTYLINE HCL [Concomitant]

REACTIONS (3)
  - ERECTILE DYSFUNCTION [None]
  - NAUSEA [None]
  - NERVOUSNESS [None]
